FAERS Safety Report 5250488-1 (Version None)
Quarter: 2007Q1

REPORT INFORMATION
  Report Type: 
  Country: None (occurrence: None)
  Receive Date: 20070228
  Receipt Date: 20070212
  Transmission Date: 20070707
  Serious: No
  Sender: FDA-Public Use
  Company Number: US-GLAXOSMITHKLINE-A0603015A

PATIENT
  Age: 14 Year
  Sex: Female
  Weight: 69.1 kg

DRUGS (3)
  1. LAMICTAL [Suspect]
     Dosage: 50MG PER DAY
     Route: 048
     Dates: start: 20060401, end: 20060429
  2. NEURONTIN [Concomitant]
     Dosage: 100MG TWICE PER DAY
     Route: 048
  3. METADATE CD [Concomitant]
     Dosage: 10MG PER DAY
     Route: 048

REACTIONS (5)
  - COORDINATION ABNORMAL [None]
  - HEADACHE [None]
  - NAUSEA [None]
  - NYSTAGMUS [None]
  - VERTIGO [None]
